FAERS Safety Report 4268701-6 (Version None)
Quarter: 2004Q1

REPORT INFORMATION
  Report Type: 
  Country: None (occurrence: None)
  Receive Date: 20040108
  Receipt Date: 20031230
  Transmission Date: 20041129
  Serious: Yes (Other)
  Sender: FDA-Public Use
  Company Number: K200301946

PATIENT
  Age: 32 Year
  Sex: Female
  Weight: 38.5 kg

DRUGS (1)
  1. LEVOXYL [Suspect]
     Indication: THYROIDECTOMY PARTIAL
     Dosage: 100 MCG, QPM, ORAL
     Route: 048
     Dates: start: 20020101

REACTIONS (4)
  - CHEST DISCOMFORT [None]
  - DYSPHAGIA [None]
  - ORAL DISCOMFORT [None]
  - SENSATION OF FOREIGN BODY [None]
